FAERS Safety Report 12389172 (Version 9)
Quarter: 2017Q1

REPORT INFORMATION
  Report Type: Report from Study
  Country: BE (occurrence: BE)
  Receive Date: 20160520
  Receipt Date: 20170227
  Transmission Date: 20170428
  Serious: Yes (Hospitalization, Other)
  Sender: FDA-Public Use
  Company Number: BE-PFIZER INC-2016255003

PATIENT
  Age: 78 Year
  Sex: Female
  Weight: 66 kg

DRUGS (5)
  1. PALBOCICLIB [Suspect]
     Active Substance: PALBOCICLIB
     Dosage: 125 MG DAILY, CYCLIC
     Route: 048
     Dates: start: 20160524, end: 20160816
  2. PALBOCICLIB [Suspect]
     Active Substance: PALBOCICLIB
     Dosage: 100 MG ONCE A DAY, CICLIC
     Route: 048
     Dates: start: 20161031
  3. PALBOCICLIB [Suspect]
     Active Substance: PALBOCICLIB
     Dosage: 125 MG DAILY, CYCLIC
     Route: 048
     Dates: start: 20160822, end: 20160919
  4. PALBOCICLIB [Suspect]
     Active Substance: PALBOCICLIB
     Indication: BREAST CANCER
     Dosage: 125 MG DAILY, CYCLIC
     Route: 048
     Dates: start: 20160426, end: 20160510
  5. PALBOCICLIB [Suspect]
     Active Substance: PALBOCICLIB
     Dosage: 100 MG ONCE A DAY, CICLIC
     Route: 048
     Dates: start: 20160926, end: 20161024

REACTIONS (3)
  - Leukopenia [Not Recovered/Not Resolved]
  - Renal failure [Recovered/Resolved]
  - Neutropenia [Not Recovered/Not Resolved]

NARRATIVE: CASE EVENT DATE: 20160510
